FAERS Safety Report 9140537 (Version 1)
Quarter: 2013Q1

REPORT INFORMATION
  Report Type: Spontaneous
  Country: US (occurrence: None)
  Receive Date: 20130227
  Receipt Date: 20130227
  Transmission Date: 20140127
  Serious: Yes (Other)
  Sender: FDA-Public Use
  Company Number: AUR-APL-2011-05437

PATIENT
  Age: 22 Year
  Sex: Male

DRUGS (3)
  1. VENLAFAXINE [Suspect]
     Indication: CATAPLEXY
     Dosage: (75 MG),  UNKNOWN?   -   STOPPED
  2. MODAFINIL [Suspect]
     Indication: NARCOLEPSY
     Dosage: 200 MG IN THE MORNING,  ADDITIONAL  100 MG MID-DAY?DOSE  (1 D), UNKNOWN
  3. MODAFINIL [Suspect]
     Indication: CATAPLEXY
     Dosage: 200 MG IN THE MORNING,  ADDITIONAL  100 MG MID-DAY?DOSE  (1 D), UNKNOWN

REACTIONS (9)
  - Personality change [None]
  - Antisocial behaviour [None]
  - Pressure of speech [None]
  - Psychomotor hyperactivity [None]
  - Gambling [None]
  - Sexual activity increased [None]
  - Grandiosity [None]
  - Mania [None]
  - Bipolar disorder [None]
